FAERS Safety Report 13556180 (Version 1)
Quarter: 2017Q2

REPORT INFORMATION
  Report Type: Spontaneous
  Country: US (occurrence: US)
  Receive Date: 20170517
  Receipt Date: 20170517
  Transmission Date: 20170830
  Serious: No
  Sender: FDA-Public Use
  Company Number: US-SA-2016SA230421

PATIENT
  Age: 81 Year
  Sex: Male

DRUGS (2)
  1. TOUJEO [Suspect]
     Active Substance: INSULIN GLARGINE
     Indication: DIABETES MELLITUS
     Dosage: DOSE:60 UNIT(S)
     Route: 065
     Dates: start: 20160803, end: 20161011
  2. SOLOSTAR [Concomitant]
     Active Substance: DEVICE
     Dates: start: 20160803, end: 20161011

REACTIONS (2)
  - Rash pustular [Recovered/Resolved]
  - Pruritus [Recovered/Resolved]
